FAERS Safety Report 17212474 (Version 1)
Quarter: 2019Q4

REPORT INFORMATION
  Report Type: Report from Study
  Country: ES (occurrence: ES)
  Receive Date: 20191230
  Receipt Date: 20191230
  Transmission Date: 20200122
  Serious: Yes (Hospitalization)
  Sender: FDA-Public Use
  Company Number: ES-TEVA-2019-ES-1158290

PATIENT
  Age: 67 Year
  Sex: Male

DRUGS (5)
  1. NIFEDIPINO (3253A) [Concomitant]
     Active Substance: NIFEDIPINE
     Dates: start: 20180411
  2. ENALAPRIL (2142A) [Suspect]
     Active Substance: ENALAPRIL
     Indication: HYPERTENSION
     Route: 065
     Dates: start: 20180411, end: 20180416
  3. FUROSEMIDA (1615A) [Suspect]
     Active Substance: FUROSEMIDE
     Route: 007
     Dates: start: 20180411, end: 20180416
  4. METAMIZOL (111A) [Concomitant]
     Active Substance: METAMIZOL SODIUM
     Dates: start: 20180411, end: 20180417
  5. SIMVASTATINA (1023A) [Concomitant]
     Active Substance: SIMVASTATIN
     Indication: DYSLIPIDAEMIA

REACTIONS (1)
  - Acute kidney injury [Recovered/Resolved]

NARRATIVE: CASE EVENT DATE: 20180412
